FAERS Safety Report 5072505-4 (Version None)
Quarter: 2006Q3

REPORT INFORMATION
  Report Type: 
  Country: None (occurrence: None)
  Receive Date: 20060807
  Receipt Date: 20060801
  Transmission Date: 20061208
  Serious: Yes (Hospitalization)
  Sender: FDA-Public Use
  Company Number: DE-MERCK-0608DEU00006

PATIENT
  Age: 60 Year
  Sex: Male

DRUGS (3)
  1. SINGULAIR [Suspect]
     Indication: RHINITIS
     Route: 048
     Dates: start: 20060628, end: 20060630
  2. SINGULAIR [Suspect]
     Indication: ASTHMA
     Route: 048
     Dates: start: 20060628, end: 20060630
  3. ASPIRIN [Suspect]
     Route: 048
     Dates: start: 20060701, end: 20060701

REACTIONS (5)
  - ANAPHYLACTIC SHOCK [None]
  - BUNDLE BRANCH BLOCK RIGHT [None]
  - FEELING HOT [None]
  - LEUKOCYTOSIS [None]
  - LIPASE INCREASED [None]
